FAERS Safety Report 7301046-6 (Version None)
Quarter: 2010Q4

REPORT INFORMATION
  Report Type: 
  Country: None (occurrence: None)
  Receive Date: 20101229
  Receipt Date: 20101008
  Transmission Date: 20110411
  Serious: No
  Sender: FDA-Public Use
  Company Number: 1000016713

PATIENT
  Age: 79 Year
  Sex: Female

DRUGS (7)
  1. BYSTOLIC [Suspect]
     Indication: HYPERTENSION
     Dosage: 5 MG (5 MG, 1 IN 1 D), ORAL
     Route: 048
     Dates: start: 20100801
  2. NORVASC [Concomitant]
  3. SPIRIVA (TIOTROPIUM BROMIDE) (TIOTROPIUM BROMIDE) [Concomitant]
  4. ASMANEX (MOMETASONE FUROATE) (MOMETASONE FUROATE) [Concomitant]
  5. PROAIR (FLUTICASONE PROPIONATE) (FLUTICASONE PROPIONATE) [Concomitant]
  6. ASPIRIN [Concomitant]
  7. LASIX [Concomitant]

REACTIONS (1)
  - DIARRHOEA [None]
